FAERS Safety Report 5709326-2 (Version None)
Quarter: 2008Q2

REPORT INFORMATION
  Report Type: 
  Country: None (occurrence: None)
  Receive Date: 20080417
  Receipt Date: 20080417
  Transmission Date: 20081010
  Serious: Yes (Other)
  Sender: FDA-Public Use
  Company Number: None

PATIENT
  Age: 61 Year
  Sex: Female
  Weight: 54.4316 kg

DRUGS (1)
  1. AZITHROMYCIN [Suspect]
     Indication: INFLUENZA
     Dosage: 250 MG TOTAL OF SIX PILLS (THREE WERE TAKEN)
     Dates: start: 20080320, end: 20080321

REACTIONS (4)
  - DIARRHOEA [None]
  - FEELING ABNORMAL [None]
  - HEADACHE [None]
  - NAUSEA [None]
